FAERS Safety Report 4301256-6 (Version None)
Quarter: 2004Q1

REPORT INFORMATION
  Report Type: 
  Country: None (occurrence: None)
  Receive Date: 20040219
  Receipt Date: 20040210
  Transmission Date: 20041129
  Serious: Yes (Hospitalization)
  Sender: FDA-Public Use
  Company Number: 2004-00651

PATIENT
  Age: 34 Year
  Sex: Male
  Weight: 97 kg

DRUGS (5)
  1. LIDOCAINE HCL [Suspect]
     Indication: ANAESTHESIA
     Dosage: 360 MG, SINGLE, INTRATHECAL
     Route: 037
  2. ROPIVACAINE [Suspect]
     Indication: ANAESTHESIA
     Dosage: 150 MG, SINGLE, INTRATHECAL
     Route: 037
  3. DIAZEPAM [Concomitant]
  4. FENTANYL [Concomitant]
  5. SALINE IV [Concomitant]

REACTIONS (3)
  - CARDIAC ARREST [None]
  - DRUG INTERACTION [None]
  - DRUG INTERACTION POTENTIATION [None]
